FAERS Safety Report 8311358-5 (Version None)
Quarter: 2012Q2

REPORT INFORMATION
  Report Type: 
  Country: None (occurrence: None)
  Receive Date: 20120425
  Receipt Date: 20120412
  Transmission Date: 20120825
  Serious: Yes (Other)
  Sender: FDA-Public Use
  Company Number: US-BAYER-2012-008231

PATIENT
  Sex: Male

DRUGS (1)
  1. KOGENATE FS [Suspect]
     Dosage: 5000 U/WEEK

REACTIONS (2)
  - ANGER [None]
  - CONVULSION [None]
